FAERS Safety Report 4724242-0 (Version None)
Quarter: 2005Q3

REPORT INFORMATION
  Report Type: 
  Country: None (occurrence: None)
  Receive Date: 20050726
  Receipt Date: 20050714
  Transmission Date: 20060218
  Serious: Yes (Other)
  Sender: FDA-Public Use
  Company Number: US-JNJFOC-20050701399

PATIENT
  Sex: Female
  Weight: 81.19 kg

DRUGS (7)
  1. REMICADE [Suspect]
     Indication: SARCOIDOSIS
     Route: 042
  2. ASPIRIN [Concomitant]
  3. METHOTREXATE [Concomitant]
  4. PLAQUENIL [Concomitant]
  5. IMMUNOGLOBULIN [Concomitant]
  6. TYLENOL [Concomitant]
  7. FOLIC ACID [Concomitant]

REACTIONS (3)
  - BLINDNESS [None]
  - HYPERCOAGULATION [None]
  - RETINAL VEIN OCCLUSION [None]
